FAERS Safety Report 13870610 (Version 2)
Quarter: 2017Q3

REPORT INFORMATION
  Report Type: Spontaneous
  Country: KR (occurrence: KR)
  Receive Date: 20170816
  Receipt Date: 20170818
  Transmission Date: 20171127
  Serious: Yes (Other)
  Sender: FDA-Public Use
  Company Number: KR-BAXTER-2017BAX029485

PATIENT
  Age: 57 Year
  Sex: Female

DRUGS (4)
  1. EPIRUBICIN [Suspect]
     Active Substance: EPIRUBICIN
     Indication: NON-SMALL CELL LUNG CANCER
     Dosage: EC THERAPY
     Route: 065
     Dates: start: 20141125, end: 20150113
  2. CRIZOTINIB [Suspect]
     Active Substance: CRIZOTINIB
     Indication: NON-SMALL CELL LUNG CANCER
     Route: 065
     Dates: start: 20150506, end: 20151117
  3. CERITINIB [Suspect]
     Active Substance: CERITINIB
     Indication: NON-SMALL CELL LUNG CANCER
     Route: 065
     Dates: start: 20160311, end: 20170630
  4. ENDOXAN 500MG INJ. (CYCLOPHOSPHAMIDE) [Suspect]
     Active Substance: CYCLOPHOSPHAMIDE
     Indication: NON-SMALL CELL LUNG CANCER
     Dosage: EC THERAPY
     Route: 065
     Dates: start: 20141125, end: 20150113

REACTIONS (2)
  - Spinal osteoarthritis [Unknown]
  - Metastases to central nervous system [Unknown]
